FAERS Safety Report 8394733-2 (Version None)
Quarter: 2012Q2

REPORT INFORMATION
  Report Type: 
  Country: None (occurrence: None)
  Receive Date: 20120529
  Receipt Date: 20120529
  Transmission Date: 20120825
  Serious: Yes (Death)
  Sender: FDA-Public Use
  Company Number: None

PATIENT
  Sex: Male

DRUGS (1)
  1. ZYTIGA [Suspect]
     Indication: NEOPLASM MALIGNANT
     Dosage: 250MG 4 TABS DAILY ORAL
     Route: 048
     Dates: start: 20120201, end: 20120301

REACTIONS (1)
  - DEATH [None]
